FAERS Safety Report 13183250 (Version 1)
Quarter: 2017Q1

REPORT INFORMATION
  Report Type: Spontaneous
  Country: US (occurrence: US)
  Receive Date: 20170202
  Receipt Date: 20170202
  Transmission Date: 20170428
  Serious: No
  Sender: FDA-Public Use
  Company Number: None

PATIENT
  Sex: Male

DRUGS (1)
  1. HUMIRA [Suspect]
     Active Substance: ADALIMUMAB
     Dosage: DOSE AMOUNT - 80 MG ON DAY 0 THEN 40MG ON?FREQUENCY - 80 MG ON DAY 0 THEN 40MG
     Route: 058
     Dates: start: 20170117

REACTIONS (1)
  - Mouth ulceration [None]
